FAERS Safety Report 18140406 (Version 6)
Quarter: 2020Q4

REPORT INFORMATION
  Report Type: Spontaneous
  Country: US (occurrence: US)
  Receive Date: 20200812
  Receipt Date: 20201217
  Transmission Date: 20210113
  Serious: Yes (Other)
  Sender: FDA-Public Use
  Company Number: US-PFIZER INC-2020297402

PATIENT
  Age: 56 Year
  Sex: Male

DRUGS (1)
  1. KERYDIN [Suspect]
     Active Substance: TAVABOROLE
     Dosage: UNK
     Route: 061

REACTIONS (4)
  - Exposure via skin contact [Unknown]
  - Product container issue [Unknown]
  - Accidental exposure to product [Unknown]
  - Skin laceration [Recovered/Resolved]
